FAERS Safety Report 8513109-8 (Version None)
Quarter: 2012Q3

REPORT INFORMATION
  Report Type: 
  Country: None (occurrence: None)
  Receive Date: 20120716
  Receipt Date: 20120710
  Transmission Date: 20120928
  Serious: Yes (Life-Threatening, Hospitalization)
  Sender: FDA-Public Use
  Company Number: JP-CELGENEUS-087-50794-12071438

PATIENT
  Sex: Male
  Weight: 72 kg

DRUGS (20)
  1. AUGMENTIN '125' [Concomitant]
     Route: 065
     Dates: start: 20120405, end: 20120413
  2. VFEND [Concomitant]
     Route: 065
     Dates: start: 20120515
  3. CEFEPIME DIHYDROCHLORIDE HYDRATE [Concomitant]
     Route: 065
     Dates: start: 20120427, end: 20120430
  4. ITRACONAZOLE [Concomitant]
     Route: 065
     Dates: start: 20120409, end: 20120502
  5. SULFAMETHOXAZOLE AND TRIMETHOPRIM [Concomitant]
     Route: 065
     Dates: start: 20120229
  6. LEVOFLOXACIN [Concomitant]
     Route: 065
     Dates: start: 20120327, end: 20120329
  7. MEROPENEM [Concomitant]
     Route: 065
     Dates: start: 20120430, end: 20120503
  8. TORSEMIDE [Concomitant]
     Route: 065
     Dates: start: 20120501
  9. FLUCONAZOLE [Concomitant]
     Route: 065
     Dates: start: 20120229, end: 20120408
  10. CEFEPIME DIHYDROCHLORIDE HYDRATE [Concomitant]
     Route: 065
     Dates: start: 20120412, end: 20120419
  11. VIDAZA [Suspect]
     Indication: MYELODYSPLASTIC SYNDROME
     Dosage: 75 MILLIGRAM/SQ. METER
     Route: 058
     Dates: start: 20120227, end: 20120304
  12. AMBISOME [Concomitant]
     Route: 065
     Dates: start: 20120503, end: 20120514
  13. ISONIAZID [Concomitant]
     Route: 065
     Dates: start: 20120501
  14. CLARITHROMYCIN [Concomitant]
     Route: 065
     Dates: start: 20120503, end: 20120509
  15. VIDAZA [Suspect]
     Dosage: 75 MILLIGRAM/SQ. METER
     Route: 058
     Dates: start: 20120418, end: 20120424
  16. RAMELTEON [Concomitant]
     Route: 065
     Dates: start: 20120227, end: 20120304
  17. D-SORBITOL [Concomitant]
     Route: 065
     Dates: start: 20120301
  18. CEFEPIME DIHYDROCHLORIDE HYDRATE [Concomitant]
     Route: 065
     Dates: start: 20120322, end: 20120326
  19. LEVOFLOXACIN [Concomitant]
     Route: 065
     Dates: start: 20120424, end: 20120430
  20. RAMELTEON [Concomitant]
     Route: 065
     Dates: start: 20120418, end: 20120424

REACTIONS (2)
  - FEBRILE NEUTROPENIA [None]
  - NEUTROPHIL COUNT DECREASED [None]
